FAERS Safety Report 17405752 (Version 1)
Quarter: 2020Q1

REPORT INFORMATION
  Report Type: Spontaneous
  Country: US (occurrence: US)
  Receive Date: 20200127
  Receipt Date: 20200127
  Transmission Date: 20200409
  Serious: Yes (Hospitalization)
  Sender: FDA-Public Use
  Company Number: None

PATIENT
  Age: 16 Year
  Sex: Male

DRUGS (4)
  1. LEVOTHYROXIN [Concomitant]
     Active Substance: LEVOTHYROXINE
  2. NORDITROPIN [Concomitant]
     Active Substance: SOMATROPIN
  3. TESTOST CYP [Concomitant]
     Active Substance: TESTOSTERONE CYPIONATE
  4. OMNITROPE [Suspect]
     Active Substance: SOMATROPIN
     Indication: PRADER-WILLI SYNDROME
     Route: 058
     Dates: start: 20190208

REACTIONS (1)
  - Hospitalisation [None]
